FAERS Safety Report 12118855 (Version 1)
Quarter: 2016Q1

REPORT INFORMATION
  Report Type: Report from Study
  Country: US (occurrence: US)
  Receive Date: 20160226
  Receipt Date: 20160226
  Transmission Date: 20160526
  Serious: Yes (Other)
  Sender: FDA-Public Use
  Company Number: US-SA-2016SA035203

PATIENT
  Sex: Female

DRUGS (2)
  1. LIPITOR [Concomitant]
     Active Substance: ATORVASTATIN CALCIUM
  2. ALLEGRA [Suspect]
     Active Substance: FEXOFENADINE HYDROCHLORIDE
     Route: 048

REACTIONS (11)
  - Hypertension [Unknown]
  - Otitis media [Unknown]
  - Obesity [Unknown]
  - Bladder cancer [Unknown]
  - Bundle branch block left [Unknown]
  - Peripheral swelling [Unknown]
  - Dyslipidaemia [Unknown]
  - Arthritis [Unknown]
  - Coronary artery disease [Unknown]
  - Gastrooesophageal reflux disease [Unknown]
  - Snoring [Unknown]
